FAERS Safety Report 25172896 (Version 1)
Quarter: 2025Q2

REPORT INFORMATION
  Report Type: Spontaneous
  Country: US (occurrence: None)
  Receive Date: 20250408
  Receipt Date: 20250408
  Transmission Date: 20250716
  Serious: No
  Sender: FDA-CTU
  Company Number: None

PATIENT
  Age: 76 Year
  Sex: Male
  Weight: 85 kg

DRUGS (1)
  1. DUTASTERIDE [Suspect]
     Active Substance: DUTASTERIDE
     Indication: Prostatic disorder
     Dosage: 90 CAPSULE(S) DAILY ORAL
     Route: 048

REACTIONS (1)
  - Cyst [None]

NARRATIVE: CASE EVENT DATE: 20240829
